FAERS Safety Report 25698665 (Version 1)
Quarter: 2025Q3

REPORT INFORMATION
  Report Type: Report from Study
  Country: US (occurrence: US)
  Receive Date: 20250819
  Receipt Date: 20250819
  Transmission Date: 20251021
  Serious: No
  Sender: SUNOVION
  Company Number: US-SUMITOMO PHARMA SWITZERLAND GMBH-2025SPA010346

PATIENT
  Age: 92 Year
  Sex: Male

DRUGS (21)
  1. ORGOVYX [Suspect]
     Active Substance: RELUGOLIX
     Indication: Prostate cancer
     Route: 048
  2. ORGOVYX [Suspect]
     Active Substance: RELUGOLIX
     Route: 048
  3. CALQUENCE [Concomitant]
     Active Substance: ACALABRUTINIB
  4. ELIQUIS [Concomitant]
     Active Substance: APIXABAN
  5. VITAMIN C [Concomitant]
     Active Substance: ASCORBIC ACID
  6. CALCIUM\MAGNESIUM [Concomitant]
     Active Substance: CALCIUM\MAGNESIUM
  7. VITAMIN D3 [Concomitant]
     Active Substance: CHOLECALCIFEROL
  8. V3n [Concomitant]
  9. COENZYME Q10 [Concomitant]
     Active Substance: DIETARY SUPPLEMENT\UBIDECARENONE
  10. HYDROCORTISONE [Concomitant]
     Active Substance: HYDROCORTISONE
  11. MAGNESIUM [Concomitant]
     Active Substance: MAGNESIUM
  12. MIDODRINE [Concomitant]
     Active Substance: MIDODRINE
  13. PUMPKIN SEED OIL [Concomitant]
     Active Substance: PUMPKIN SEED OIL
  14. VITAMINS [Concomitant]
     Active Substance: VITAMINS
  15. NIACIN [Concomitant]
     Active Substance: NIACIN
  16. POTASSIUM [Concomitant]
     Active Substance: POTASSIUM
  17. ROSUVASTATIN [Concomitant]
     Active Substance: ROSUVASTATIN
  18. TAMSULOSIN [Concomitant]
     Active Substance: TAMSULOSIN
  19. HERBALS\TURMERIC [Concomitant]
     Active Substance: HERBALS\TURMERIC
  20. ZINC [Concomitant]
     Active Substance: ZINC
  21. CLONIDINE [Concomitant]
     Active Substance: CLONIDINE

REACTIONS (1)
  - Feeling abnormal [Recovered/Resolved]
